FAERS Safety Report 11913230 (Version 1)
Quarter: 2016Q1

REPORT INFORMATION
  Report Type: Spontaneous
  Country: US (occurrence: US)
  Receive Date: 20160113
  Receipt Date: 20160113
  Transmission Date: 20160526
  Serious: No
  Sender: FDA-Public Use
  Company Number: US-WATSON-2015-13556

PATIENT
  Age: 70 Year
  Sex: Female

DRUGS (2)
  1. METRONIDAZOLE (WATSON LABORATORIES) [Suspect]
     Active Substance: METRONIDAZOLE
     Indication: DIVERTICULITIS
     Dosage: 250 MG, TID
     Route: 048
     Dates: start: 201411, end: 201411
  2. CIPROFLOXACIN. [Concomitant]
     Active Substance: CIPROFLOXACIN
     Indication: DIVERTICULITIS
     Dosage: UNK, UNKNOWN
     Route: 048
     Dates: start: 201411, end: 201412

REACTIONS (1)
  - Paraesthesia [Recovered/Resolved]

NARRATIVE: CASE EVENT DATE: 201411
